FAERS Safety Report 23014028 (Version 4)
Quarter: 2025Q2

REPORT INFORMATION
  Report Type: Report from Study
  Country: CA (occurrence: CA)
  Receive Date: 20231002
  Receipt Date: 20250407
  Transmission Date: 20250716
  Serious: Yes (Death, Hospitalization, Other)
  Sender: CSL BEHRING
  Company Number: CA-BEH-2023163662

PATIENT
  Age: 83 Year
  Sex: Female
  Weight: 76 kg

DRUGS (32)
  1. HIZENTRA [Suspect]
     Active Substance: HUMAN IMMUNOGLOBULIN G
     Indication: Primary immunodeficiency syndrome
     Dosage: 11 GRAM, QW
     Route: 065
     Dates: start: 20220920
  2. HIZENTRA [Suspect]
     Active Substance: HUMAN IMMUNOGLOBULIN G
     Dosage: 11 GRAM(PRODUCT STRENGTH: 1-1G, 1-2 G, 2-4G), QW
     Route: 058
     Dates: start: 20220920
  3. ACETAMINOPHEN [Concomitant]
     Active Substance: ACETAMINOPHEN
  4. CALCIUM [Concomitant]
     Active Substance: CALCIUM
  5. ALVESCO [Concomitant]
     Active Substance: CICLESONIDE
  6. NASONEX [Concomitant]
     Active Substance: MOMETASONE FUROATE
  7. PREDNISONE [Concomitant]
     Active Substance: PREDNISONE
  8. LINAGLIPTIN [Concomitant]
     Active Substance: LINAGLIPTIN
  9. MONTELUKAST SODIUM [Concomitant]
     Active Substance: MONTELUKAST SODIUM
  10. ATORVASTATIN [Concomitant]
     Active Substance: ATORVASTATIN
  11. DILTIAZEM [Concomitant]
     Active Substance: DILTIAZEM
  12. RISEDRONATE SODIUM [Concomitant]
     Active Substance: RISEDRONATE SODIUM
  13. SODIUM [Concomitant]
     Active Substance: SODIUM
  14. METFORMIN [Concomitant]
     Active Substance: METFORMIN HYDROCHLORIDE
  15. IRBESARTAN [Concomitant]
     Active Substance: IRBESARTAN
  16. FERROUS SULFATE [Concomitant]
     Active Substance: FERROUS SULFATE
  17. PREGABALIN [Concomitant]
     Active Substance: PREGABALIN
  18. DOXAZOSIN MESYLATE [Concomitant]
     Active Substance: DOXAZOSIN MESYLATE
  19. CHOLECALCIFEROL [Concomitant]
     Active Substance: CHOLECALCIFEROL
  20. PANTOPRAZOLE [Concomitant]
     Active Substance: PANTOPRAZOLE
  21. DOMPERIDONE [Concomitant]
     Active Substance: DOMPERIDONE
  22. ASPIRIN [Concomitant]
     Active Substance: ASPIRIN
  23. ISOSORBIDE MONONITRATE [Concomitant]
     Active Substance: ISOSORBIDE MONONITRATE
  24. SULFAMETHOXAZOLE [Concomitant]
     Active Substance: SULFAMETHOXAZOLE
  25. FLUTICASONE FUROATE [Concomitant]
     Active Substance: FLUTICASONE FUROATE
  26. PREDNISONE [Concomitant]
     Active Substance: PREDNISONE
  27. EMOLAX [MACROGOL 3350] [Concomitant]
  28. OCTREOTIDE [Concomitant]
     Active Substance: OCTREOTIDE
  29. EVUSHELD [Concomitant]
     Active Substance: CILGAVIMAB\TIXAGEVIMAB
  30. FASENRA [Concomitant]
     Active Substance: BENRALIZUMAB
  31. METROGEL [Concomitant]
     Active Substance: METRONIDAZOLE
  32. ALBUTEROL [Concomitant]
     Active Substance: ALBUTEROL

REACTIONS (19)
  - Death [Fatal]
  - Fatigue [Unknown]
  - Transfusion [Unknown]
  - Dehydration [Unknown]
  - Thrombosis [Unknown]
  - Haemorrhage [Unknown]
  - Renal impairment [Unknown]
  - Coronary arterial stent insertion [Unknown]
  - Eating disorder [Recovered/Resolved]
  - White blood cell count decreased [Unknown]
  - White blood cell count increased [Unknown]
  - Illness [Unknown]
  - Pneumonia aspiration [Unknown]
  - Dysphagia [Unknown]
  - Fatigue [Unknown]
  - Pneumonia aspiration [Unknown]
  - Vomiting [Unknown]
  - Ill-defined disorder [Unknown]
  - Angina pectoris [Unknown]

NARRATIVE: CASE EVENT DATE: 20220101
